FAERS Safety Report 6906454-0 (Version None)
Quarter: 2010Q3

REPORT INFORMATION
  Report Type: 
  Country: None (occurrence: None)
  Receive Date: 20100804
  Receipt Date: 20100730
  Transmission Date: 20110219
  Serious: Yes (Other)
  Sender: FDA-Public Use
  Company Number: GXKR2010DE08463

PATIENT
  Sex: Female

DRUGS (1)
  1. AMLODIPIN HEXAL (NGX) [Suspect]
     Indication: HYPERTENSION
     Dosage: 5 MG, QD
     Route: 048
     Dates: start: 20100301

REACTIONS (2)
  - MUSCLE RUPTURE [None]
  - MYALGIA [None]
